FAERS Safety Report 13440208 (Version 1)
Quarter: 2017Q2

REPORT INFORMATION
  Report Type: Spontaneous
  Country: US (occurrence: US)
  Receive Date: 20170413
  Receipt Date: 20170413
  Transmission Date: 20170830
  Serious: Yes (Hospitalization, Other)
  Sender: FDA-Public Use
  Company Number: US-ASTELLAS-2016US021954

PATIENT
  Age: 81 Year
  Sex: Female

DRUGS (2)
  1. PROGRAF [Suspect]
     Active Substance: TACROLIMUS\TACROLIMUS ANHYDROUS
     Indication: RENAL TRANSPLANT
     Dosage: 2 MG EVERY MORNING AND 1 MG EVERY EVENING, TWICE DAILY
     Route: 048
     Dates: start: 19990322
  2. PROGRAF [Suspect]
     Active Substance: TACROLIMUS\TACROLIMUS ANHYDROUS
     Dosage: 2 MG EVERY MORNING AND 1 MG EVERY EVENING, TWICE DAILY
     Route: 048
     Dates: start: 20000630

REACTIONS (2)
  - Neoplasm malignant [Unknown]
  - Vomiting [Unknown]

NARRATIVE: CASE EVENT DATE: 20160603
